FAERS Safety Report 26199724 (Version 1)
Quarter: 2025Q4

REPORT INFORMATION
  Report Type: Spontaneous
  Country: US (occurrence: US)
  Receive Date: 20251225
  Receipt Date: 20251225
  Transmission Date: 20260117
  Serious: Yes (Other)
  Sender: ACCORD
  Company Number: US-MLMSERVICE-20251204-PI740758-00336-1

PATIENT
  Age: 75 Year
  Sex: Female

DRUGS (1)
  1. ZOLEDRONIC ACID [Suspect]
     Active Substance: ZOLEDRONIC ACID
     Indication: Osteoporosis
     Dosage: RECEIVED A SINGLE DOSE OF 5 MG IV DOSE OF ZA 11 DAYS PRIOR

REACTIONS (4)
  - Renal tubular necrosis [Recovering/Resolving]
  - Acute kidney injury [Recovered/Resolved]
  - Nephritis allergic [Recovering/Resolving]
  - Off label use [Unknown]
